FAERS Safety Report 9307690 (Version 5)
Quarter: 2014Q1

REPORT INFORMATION
  Report Type: Spontaneous
  Country: JP (occurrence: JP)
  Receive Date: 20130524
  Receipt Date: 20140217
  Transmission Date: 20141002
  Serious: Yes (Hospitalization)
  Sender: FDA-Public Use
  Company Number: JP-ELI_LILLY_AND_COMPANY-JP201305006442

PATIENT
  Age: 78 Year
  Sex: Female
  Weight: 50.5 kg

DRUGS (9)
  1. GEMZAR [Suspect]
     Indication: OVARIAN CANCER STAGE III
     Dosage: 1000 MG/M2, DAY1, 8 AND 15
     Route: 042
     Dates: start: 20130311, end: 20130516
  2. DIOVAN [Concomitant]
     Dosage: 80 MG, QD
     Route: 048
  3. CRESTOR [Concomitant]
     Dosage: 10 MG, QD
     Route: 048
  4. ARTIST [Concomitant]
     Dosage: 10 MG, QD
     Route: 048
  5. LASIX [Concomitant]
     Dosage: 40 MG, BID
     Route: 048
  6. WARFARIN [Concomitant]
     Dosage: 2 MG, QD
     Route: 048
  7. ALOSITOL [Concomitant]
     Dosage: 100 MG, QD
     Route: 048
  8. GRANISETRON [Concomitant]
     Indication: PROPHYLAXIS OF NAUSEA AND VOMITING
     Dosage: 3 MG, UNK
     Route: 042
     Dates: start: 20130311, end: 20130516
  9. DECADRON                                /CAN/ [Concomitant]
     Indication: PROPHYLAXIS OF NAUSEA AND VOMITING
     Dosage: 6.6 MG, UNK
     Route: 042
     Dates: start: 20130311, end: 20130516

REACTIONS (4)
  - Diabetic hyperglycaemic coma [Recovered/Resolved]
  - Fall [Unknown]
  - Contusion [Unknown]
  - Diabetes mellitus [Unknown]
